FAERS Safety Report 4890608-1 (Version None)
Quarter: 2006Q1

REPORT INFORMATION
  Report Type: 
  Country: None (occurrence: None)
  Receive Date: 20060123
  Receipt Date: 20060103
  Transmission Date: 20060701
  Serious: Yes (Other)
  Sender: FDA-Public Use
  Company Number: US200601000488

PATIENT
  Age: 64 Year
  Sex: Female

DRUGS (2)
  1. EVISTA [Suspect]
     Dosage: DAILY (1/D), OTHER
     Route: 050
     Dates: start: 20040101, end: 20040701
  2. EVISTA [Suspect]
     Dosage: DAILY (1/D), OTHER
     Route: 050
     Dates: start: 20041001, end: 20050701

REACTIONS (3)
  - BREAST CANCER FEMALE [None]
  - FEELING ABNORMAL [None]
  - OESTROGEN RECEPTOR ASSAY NEGATIVE [None]
